FAERS Safety Report 24647345 (Version 1)
Quarter: 2024Q4

REPORT INFORMATION
  Report Type: Spontaneous
  Country: PL (occurrence: PL)
  Receive Date: 20241121
  Receipt Date: 20241121
  Transmission Date: 20250114
  Serious: Yes (Other)
  Sender: ROCHE
  Company Number: PL-ROCHE-10000133871

PATIENT
  Age: 68 Year
  Sex: Female

DRUGS (1)
  1. ATEZOLIZUMAB [Suspect]
     Active Substance: ATEZOLIZUMAB
     Indication: Small cell lung cancer
     Route: 065
     Dates: start: 20210824

REACTIONS (12)
  - Dry skin [Unknown]
  - Pruritus [Recovered/Resolved]
  - Xeroderma [Unknown]
  - Lichenification [Unknown]
  - Skin disorder [Unknown]
  - Conjunctivitis allergic [Unknown]
  - Palmar-plantar erythrodysaesthesia syndrome [Unknown]
  - Palmar-plantar erythrodysaesthesia syndrome [Recovered/Resolved]
  - Rash maculo-papular [Unknown]
  - Tongue fungal infection [Unknown]
  - Lymphadenopathy [Unknown]
  - Disease progression [Unknown]

NARRATIVE: CASE EVENT DATE: 20240306
